FAERS Safety Report 5259645-1 (Version None)
Quarter: 2007Q1

REPORT INFORMATION
  Report Type: 
  Country: None (occurrence: None)
  Receive Date: 20070309
  Receipt Date: 20070226
  Transmission Date: 20070707
  Serious: Yes (Other)
  Sender: FDA-Public Use
  Company Number: PHBS2007BR03374

PATIENT
  Age: 61 Year
  Sex: Female
  Weight: 41 kg

DRUGS (5)
  1. TEGRETOL [Suspect]
     Indication: CONVULSION
     Dosage: 200 MG, TID
     Route: 048
  2. RIVOTRIL [Concomitant]
     Dosage: 0.5 TABLET/DAY
     Route: 048
  3. SARIDON [Concomitant]
  4. DIPYRONE TAB [Concomitant]
  5. HIDANTAL [Concomitant]
     Indication: CONVULSION

REACTIONS (8)
  - BLOOD PRESSURE DECREASED [None]
  - CONVULSION [None]
  - FALL [None]
  - HEADACHE [None]
  - LOSS OF CONSCIOUSNESS [None]
  - ROAD TRAFFIC ACCIDENT [None]
  - SPINAL FRACTURE [None]
  - TREMOR [None]
